FAERS Safety Report 11760058 (Version 4)
Quarter: 2017Q1

REPORT INFORMATION
  Report Type: Spontaneous
  Country: US (occurrence: US)
  Receive Date: 20151120
  Receipt Date: 20170111
  Transmission Date: 20170428
  Serious: Yes (Other)
  Sender: FDA-Public Use
  Company Number: US-PFIZER INC-2015393396

PATIENT
  Age: 59 Year
  Sex: Female
  Weight: 90 kg

DRUGS (11)
  1. OXYCODONE HYDROCHLORIDE. [Concomitant]
     Active Substance: OXYCODONE HYDROCHLORIDE
     Indication: FIBROMYALGIA
     Dosage: 10 MG, AS NEEDED (EVERY 8 HOURS)
     Route: 048
  2. SPIRIVA [Concomitant]
     Active Substance: TIOTROPIUM BROMIDE MONOHYDRATE
     Dosage: 2 DF (PUFFS), 1X/DAY (2.5 UG/ACT AEROSOL SOLUTION)
  3. ALPRAZOLAM. [Concomitant]
     Active Substance: ALPRAZOLAM
     Indication: ANXIETY DISORDER
     Dosage: 0.25 MG, 2X/DAY
     Route: 048
  4. BREO ELLIPTA [Concomitant]
     Active Substance: FLUTICASONE FUROATE\VILANTEROL TRIFENATATE
     Dosage: 1 DF (PUFF), 1X/DAY (100, 25 UG/INH)
  5. LEVOTHYROXINE SODIUM. [Concomitant]
     Active Substance: LEVOTHYROXINE SODIUM
     Indication: HYPOTHYROIDISM
     Dosage: 75 UG, DAILY
     Route: 048
  6. ALBUTEROL SULFATE. [Concomitant]
     Active Substance: ALBUTEROL SULFATE
     Dosage: 1 DF, AS NEEDED (1 VIAL NEB EVERY 4 HOURS)
  7. VENTOLIN HFA [Concomitant]
     Active Substance: ALBUTEROL SULFATE
     Dosage: 2 DF (PUFFS), AS NEEDED 108 (90 BASE) UG/ACT (EVERY 4 HOURS)
  8. LYRICA [Suspect]
     Active Substance: PREGABALIN
     Dosage: 50 MG, 3X/DAY
  9. CYCLOBENZAPRIN HYDROCHLORIDE [Concomitant]
     Active Substance: CYCLOBENZAPRINE HYDROCHLORIDE
     Indication: FIBROMYALGIA
     Dosage: 5 MG, 3X/DAY (1/2 TABLET)
  10. OXYGEN. [Concomitant]
     Active Substance: OXYGEN
     Indication: CHRONIC OBSTRUCTIVE PULMONARY DISEASE
     Dosage: 2 L, UNK
  11. WARFARIN SODIUM. [Concomitant]
     Active Substance: WARFARIN SODIUM
     Dosage: 5 MG, 1X/DAY
     Route: 048

REACTIONS (10)
  - Pneumonia [Unknown]
  - Acarodermatitis [Recovering/Resolving]
  - Weight increased [Unknown]
  - Drug intolerance [Unknown]
  - Rash [Unknown]
  - Alopecia [Unknown]
  - Hypersomnia [Unknown]
  - Hyperhidrosis [Unknown]
  - Emphysema [Unknown]
  - Fatigue [Unknown]
